FAERS Safety Report 4449050-X (Version None)
Quarter: 2004Q3

REPORT INFORMATION
  Report Type: 
  Country: None (occurrence: None)
  Receive Date: 20040910
  Receipt Date: 20040827
  Transmission Date: 20050211
  Serious: No
  Sender: FDA-Public Use
  Company Number: 2004GB02123

PATIENT
  Age: 69 Year
  Sex: Female

DRUGS (1)
  1. FASLODEX [Suspect]
     Indication: BREAST CANCER METASTATIC
     Dosage: 250 MG IM
     Route: 030
     Dates: start: 20040803, end: 20040827

REACTIONS (4)
  - BLOOD BILIRUBIN INCREASED [None]
  - HEPATOTOXICITY [None]
  - JAUNDICE [None]
  - MALIGNANT NEOPLASM PROGRESSION [None]
